FAERS Safety Report 5029339-6 (Version None)
Quarter: 2006Q2

REPORT INFORMATION
  Report Type: 
  Country: None (occurrence: None)
  Receive Date: 20060614
  Receipt Date: 20060526
  Transmission Date: 20061013
  Serious: Yes (Hospitalization)
  Sender: FDA-Public Use
  Company Number: US200606000739

PATIENT
  Age: 77 Year
  Sex: Male

DRUGS (1)
  1. HUMALOG [Suspect]
     Dosage: UNK
     Route: 065

REACTIONS (5)
  - BLOOD GLUCOSE INCREASED [None]
  - DEVICE ELECTRICAL FINDING [None]
  - DRUG INEFFECTIVE [None]
  - INCORRECT DOSE ADMINISTERED [None]
  - PHARMACEUTICAL PRODUCT COMPLAINT [None]
